FAERS Safety Report 6499008-4 (Version None)
Quarter: 2009Q4

REPORT INFORMATION
  Report Type: 
  Country: None (occurrence: None)
  Receive Date: 20091127
  Receipt Date: 20081016
  Transmission Date: 20100525
  Serious: No
  Sender: FDA-Public Use
  Company Number: 277439

PATIENT
  Age: 47 Year
  Sex: Female
  Weight: 49.9 kg

DRUGS (3)
  1. NOVOLOG [Suspect]
     Indication: TYPE 1 DIABETES MELLITUS
     Dosage: 10 IU, QD; 10 IU, QD, SUBCUTANEOUS; 10 IU, QD, SUBCUTANEOUS
     Route: 058
  2. NOVOLOG [Suspect]
  3. LANTUS [Concomitant]

REACTIONS (2)
  - BLOOD GLUCOSE INCREASED [None]
  - DEVICE FAILURE [None]
